FAERS Safety Report 17744174 (Version 1)
Quarter: 2020Q2

REPORT INFORMATION
  Report Type: Report from Study
  Country: ES (occurrence: ES)
  Receive Date: 20200505
  Receipt Date: 20200505
  Transmission Date: 20200714
  Serious: Yes (Hospitalization)
  Sender: FDA-Public Use
  Company Number: ES-ACCORD-180735

PATIENT
  Age: 60 Year
  Sex: Female
  Weight: 64 kg

DRUGS (3)
  1. CISPLATIN. [Suspect]
     Active Substance: CISPLATIN
     Indication: CERVIX CARCINOMA STAGE II
     Route: 042
     Dates: start: 20161123, end: 20170208
  2. AVASTIN [Suspect]
     Active Substance: BEVACIZUMAB
     Indication: CERVIX CARCINOMA STAGE II
     Dosage: STRENGTH:  25 MG / ML, 1 VIAL OF 4 ML
     Route: 042
     Dates: start: 20161214, end: 20170208
  3. PACLITAXEL/PACLITAXEL LIPOSOME [Suspect]
     Active Substance: PACLITAXEL
     Indication: CERVIX CARCINOMA STAGE II
     Route: 042
     Dates: start: 20161123, end: 20170208

REACTIONS (2)
  - Genitourinary tract infection [Recovered/Resolved]
  - Urogenital fistula [Recovering/Resolving]

NARRATIVE: CASE EVENT DATE: 20170225
